FAERS Safety Report 14488225 (Version 2)
Quarter: 2018Q1

REPORT INFORMATION
  Report Type: Spontaneous
  Country: US (occurrence: JP)
  Receive Date: 20180205
  Receipt Date: 20180227
  Transmission Date: 20180509
  Serious: Yes (Other)
  Sender: FDA-Public Use
  Company Number: US-SUNOVION-2018SUN000408

PATIENT
  Age: 53 Year
  Sex: Male

DRUGS (4)
  1. INDACATEROL [Suspect]
     Active Substance: INDACATEROL
     Indication: CHRONIC OBSTRUCTIVE PULMONARY DISEASE
  2. INDACATEROL [Suspect]
     Active Substance: INDACATEROL
     Indication: OBLITERATIVE BRONCHIOLITIS
     Dosage: UNK
     Route: 055
  3. GLYCOPYRROLATE. [Suspect]
     Active Substance: GLYCOPYRROLATE
     Indication: CHRONIC OBSTRUCTIVE PULMONARY DISEASE
  4. GLYCOPYRROLATE. [Suspect]
     Active Substance: GLYCOPYRROLATE
     Indication: OBLITERATIVE BRONCHIOLITIS
     Dosage: UNK
     Route: 055

REACTIONS (1)
  - Cardiac arrest [Recovered/Resolved]

NARRATIVE: CASE EVENT DATE: 20180124
